FAERS Safety Report 23341337 (Version 1)
Quarter: 2023Q4

REPORT INFORMATION
  Report Type: Spontaneous
  Country: GB (occurrence: GB)
  Receive Date: 20231227
  Receipt Date: 20231227
  Transmission Date: 20240109
  Serious: Yes (Other)
  Sender: FDA-Public Use
  Company Number: GB-PHARMVIT-4556-3352-ER23-RN851

PATIENT

DRUGS (1)
  1. PREDNISOLONE [Suspect]
     Active Substance: PREDNISOLONE
     Indication: Myocarditis
     Dosage: 2 MG

REACTIONS (5)
  - Adrenal insufficiency [Recovered/Resolved]
  - Apathy [Recovered/Resolved]
  - Depressed mood [Recovered/Resolved]
  - Dizziness [Recovered/Resolved]
  - Fatigue [Recovered/Resolved]
